FAERS Safety Report 8570765-6 (Version None)
Quarter: 2012Q3

REPORT INFORMATION
  Report Type: 
  Country: None (occurrence: None)
  Receive Date: 20120805
  Receipt Date: 20120726
  Transmission Date: 20120928
  Serious: Yes (Other)
  Sender: FDA-Public Use
  Company Number: US-009507513-1207USA011423

PATIENT

DRUGS (3)
  1. REBETOL [Suspect]
     Route: 048
  2. PEGASYS [Suspect]
     Route: 058
  3. VICTRELIS [Suspect]

REACTIONS (5)
  - DYSPNOEA [None]
  - HAEMOGLOBIN DECREASED [None]
  - EPISTAXIS [None]
  - TOTAL LUNG CAPACITY DECREASED [None]
  - WHITE BLOOD CELL COUNT DECREASED [None]
